FAERS Safety Report 6678237-0 (Version None)
Quarter: 2010Q2

REPORT INFORMATION
  Report Type: 
  Country: None (occurrence: None)
  Receive Date: 20100408
  Receipt Date: 20100408
  Transmission Date: 20101027
  Serious: Yes (Hospitalization)
  Sender: FDA-Public Use
  Company Number: None

PATIENT
  Sex: Female
  Weight: 113.3993 kg

DRUGS (2)
  1. FEMCON FE [Suspect]
     Indication: CONTRACEPTION
     Dates: start: 20100105, end: 20100404
  2. FEMCON FE [Suspect]
     Indication: IRON DEFICIENCY
     Dates: start: 20100105, end: 20100404

REACTIONS (1)
  - PULMONARY EMBOLISM [None]
